FAERS Safety Report 8386537-1 (Version None)
Quarter: 2012Q2

REPORT INFORMATION
  Report Type: 
  Country: None (occurrence: None)
  Receive Date: 20120525
  Receipt Date: 20110531
  Transmission Date: 20120825
  Serious: No
  Sender: FDA-Public Use
  Company Number: US-GLAXOSMITHKLINE-A0929697A

PATIENT
  Age: 50 Year
  Sex: Female

DRUGS (10)
  1. SERTRALINE HYDROCHLORIDE [Concomitant]
  2. HYDROCODONE BITARTRATE [Concomitant]
  3. VERAMYST [Suspect]
     Indication: MULTIPLE ALLERGIES
     Dosage: 1SPR TWICE PER DAY
     Route: 045
     Dates: start: 20110501, end: 20110501
  4. CYCLOBENAZPRINE [Concomitant]
  5. OMEPRAZOLE [Concomitant]
  6. DIPHENHYDRAMINE HCL [Concomitant]
  7. ZOLPIDEM [Concomitant]
  8. INSULIN [Concomitant]
  9. LITHIUM CARBONATE [Concomitant]
  10. LEVOTHYROXINE SODIUM [Concomitant]

REACTIONS (1)
  - DRUG INEFFECTIVE [None]
